FAERS Safety Report 6358990-6 (Version None)
Quarter: 2009Q3

REPORT INFORMATION
  Report Type: 
  Country: None (occurrence: None)
  Receive Date: 20090916
  Receipt Date: 20090909
  Transmission Date: 20100115
  Serious: Yes (Other)
  Sender: FDA-Public Use
  Company Number: US-JNJCH-2009018980

PATIENT
  Age: 89 Year
  Sex: Female
  Weight: 65.8 kg

DRUGS (3)
  1. NEOSPORIN [Suspect]
     Indication: LACERATION
     Dosage: TEXT:^SEVERAL TIMES A DAY^
     Route: 061
  2. CHONDROITIN/GLUCOSAMINE [Concomitant]
     Indication: ARTHRITIS
     Dosage: TEXT:2 TABLETS/ DAILY
     Route: 048
  3. ANGIOPINE [Concomitant]
     Indication: HYPERTENSION
     Dosage: TEXT:1 TABLET/ DAILY
     Route: 048

REACTIONS (2)
  - INCORRECT DRUG ADMINISTRATION DURATION [None]
  - INFECTION [None]
